FAERS Safety Report 17033139 (Version 2)
Quarter: 2019Q4

REPORT INFORMATION
  Report Type: Spontaneous
  Country: FR (occurrence: FR)
  Receive Date: 20191114
  Receipt Date: 20191119
  Transmission Date: 20200122
  Serious: Yes (Hospitalization)
  Sender: FDA-Public Use
  Company Number: FR-MYLANLABS-2019M1109274

PATIENT
  Sex: Male
  Weight: 77 kg

DRUGS (2)
  1. CISPLATIN. [Suspect]
     Active Substance: CISPLATIN
     Indication: SMALL CELL LUNG CANCER
     Dosage: 449.3 MILLIGRAM
     Route: 065
     Dates: start: 20190318, end: 20190429
  2. ETOPOSIDE. [Suspect]
     Active Substance: ETOPOSIDE
     Indication: SMALL CELL LUNG CANCER
     Dosage: 1793.986 MILLIGRAM
     Route: 065
     Dates: start: 20190318, end: 20190501

REACTIONS (3)
  - Dyspnoea [Not Recovered/Not Resolved]
  - General physical health deterioration [Recovered/Resolved]
  - Pyrexia [Not Recovered/Not Resolved]

NARRATIVE: CASE EVENT DATE: 20190520
